FAERS Safety Report 8417042-1 (Version None)
Quarter: 2012Q2

REPORT INFORMATION
  Report Type: 
  Country: None (occurrence: None)
  Receive Date: 20120606
  Receipt Date: 20120531
  Transmission Date: 20120825
  Serious: Yes (Life-Threatening, Hospitalization, Disabling)
  Sender: FDA-Public Use
  Company Number: NO-PFIZER INC-2012131052

PATIENT
  Age: 50 Year
  Sex: Female

DRUGS (2)
  1. ZITHROMAX [Suspect]
     Dosage: 1 DF, 1X/DAY
     Dates: start: 20110621
  2. TWINRIX [Concomitant]
     Indication: IMMUNISATION
     Dosage: SINGLE DOSE
     Dates: start: 20110622, end: 20110622

REACTIONS (1)
  - CARDIAC ARREST [None]
